FAERS Safety Report 8109158-4 (Version None)
Quarter: 2012Q1

REPORT INFORMATION
  Report Type: 
  Country: None (occurrence: None)
  Receive Date: 20120202
  Receipt Date: 20120119
  Transmission Date: 20120608
  Serious: Yes (Hospitalization)
  Sender: FDA-Public Use
  Company Number: CA-JNJFOC-20120103696

PATIENT
  Sex: Female
  Weight: 62 kg

DRUGS (1)
  1. REMICADE [Suspect]
     Indication: CROHN'S DISEASE
     Dosage: TO THE PRESENT
     Route: 042
     Dates: start: 20050101

REACTIONS (3)
  - VOMITING [None]
  - NAUSEA [None]
  - ABDOMINAL PAIN [None]
